FAERS Safety Report 6712256-0 (Version None)
Quarter: 2010Q2

REPORT INFORMATION
  Report Type: 
  Country: None (occurrence: None)
  Receive Date: 20100505
  Receipt Date: 20100428
  Transmission Date: 20101027
  Serious: Yes (Hospitalization)
  Sender: FDA-Public Use
  Company Number: BR-ABBOTT-10P-020-0625336-00

PATIENT
  Sex: Female
  Weight: 68 kg

DRUGS (6)
  1. HUMIRA [Suspect]
     Indication: CROHN'S DISEASE
     Route: 058
  2. METICORTEN [Concomitant]
     Indication: DIABETES MELLITUS
  3. ACTOS [Concomitant]
     Indication: DIABETES MELLITUS
  4. LANTUS [Concomitant]
     Indication: DIABETES MELLITUS
  5. CALCIUM 50 [Concomitant]
     Indication: DRUG USE FOR UNKNOWN INDICATION
  6. DIAMICRON [Concomitant]
     Indication: DIABETES MELLITUS

REACTIONS (2)
  - CROHN'S DISEASE [None]
  - DIABETES MELLITUS [None]
